FAERS Safety Report 8010791-9 (Version None)
Quarter: 2011Q4

REPORT INFORMATION
  Report Type: 
  Country: None (occurrence: None)
  Receive Date: 20111228
  Receipt Date: 20111220
  Transmission Date: 20120403
  Serious: Yes (Other)
  Sender: FDA-Public Use
  Company Number: CH-JNJFOC-20111209114

PATIENT
  Sex: Male

DRUGS (2)
  1. REMICADE [Suspect]
     Indication: CROHN'S DISEASE
     Dosage: 18TH INFUSION
     Route: 042
     Dates: start: 20111201
  2. REMICADE [Suspect]
     Route: 042
     Dates: start: 20090909

REACTIONS (1)
  - SUDDEN HEARING LOSS [None]
